FAERS Safety Report 23173065 (Version 1)
Quarter: 2023Q4

REPORT INFORMATION
  Report Type: Spontaneous
  Country: US (occurrence: US)
  Receive Date: 20231110
  Receipt Date: 20231110
  Transmission Date: 20240110
  Serious: Yes (Other)
  Sender: FDA-Public Use
  Company Number: US-TORRENT-00012962

PATIENT
  Age: 26 Year
  Sex: Female

DRUGS (5)
  1. ESCITALOPRAM [Suspect]
     Active Substance: ESCITALOPRAM OXALATE
     Indication: Perinatal depression
     Dosage: UNKNOWN
     Route: 065
  2. FLUOXETINE [Suspect]
     Active Substance: FLUOXETINE HYDROCHLORIDE
     Indication: Perinatal depression
     Dosage: UNKNOWN
     Route: 065
  3. SERTRALINE [Suspect]
     Active Substance: SERTRALINE HYDROCHLORIDE
     Indication: Perinatal depression
     Dosage: UNKNOWN
     Route: 065
  4. BUPROPION [Suspect]
     Active Substance: BUPROPION
     Indication: Perinatal depression
     Dosage: UNKNOWN
     Route: 065
  5. DESVENLAFAXINE [Suspect]
     Active Substance: DESVENLAFAXINE
     Indication: Perinatal depression
     Dosage: UNKNOWN
     Route: 065

REACTIONS (3)
  - Perinatal depression [Unknown]
  - Condition aggravated [Unknown]
  - Drug intolerance [Unknown]
